FAERS Safety Report 8868592 (Version 1)
Quarter: 2012Q4

REPORT INFORMATION
  Report Type: 
  Country: US (occurrence: US)
  Receive Date: 20121026
  Receipt Date: 20121026
  Transmission Date: 20130627
  Serious: No
  Sender: FDA-Public Use
  Company Number: US-AMGEN-USASP2012046254

PATIENT
  Age: 36 Year
  Sex: Female
  Weight: 170.7 kg

DRUGS (3)
  1. ENBREL [Suspect]
     Indication: PRODUCT USED FOR UNKNOWN INDICATION
     Dosage: 50 mg, qwk
     Route: 058
  2. CLOBETASOL [Suspect]
     Dosage: 0.05 %, UNK
  3. CLOBEX [Suspect]
     Dosage: 0.05 %, UNK

REACTIONS (1)
  - Oropharyngeal pain [Unknown]
